FAERS Safety Report 5427299-7 (Version None)
Quarter: 2007Q3

REPORT INFORMATION
  Report Type: 
  Country: None (occurrence: None)
  Receive Date: 20070828
  Receipt Date: 20070821
  Transmission Date: 20080115
  Serious: Yes (Other)
  Sender: FDA-Public Use
  Company Number: DE-AMGEN-US232090

PATIENT
  Sex: Female
  Weight: 65 kg

DRUGS (2)
  1. ENBREL [Suspect]
     Indication: PSORIASIS
     Dosage: UNKNOWN
     Route: 058
  2. RAMIPRIL [Concomitant]
     Indication: HYPOTENSION
     Route: 048

REACTIONS (1)
  - LUNG CARCINOMA CELL TYPE UNSPECIFIED STAGE IV [None]
